FAERS Safety Report 17284532 (Version 1)
Quarter: 2020Q1

REPORT INFORMATION
  Report Type: Not Available
  Country: US (occurrence: US)
  Receive Date: 20200117
  Receipt Date: 20200117
  Transmission Date: 20200409
  Serious: No
  Sender: FDA-Public Use
  Company Number: US-NEUROCRINE BIOSCIENCES INC.-2020NBI00119

PATIENT

DRUGS (4)
  1. INGREZZA [Suspect]
     Active Substance: VALBENAZINE
     Indication: INSOMNIA
  2. INGREZZA [Suspect]
     Active Substance: VALBENAZINE
     Indication: BORDERLINE PERSONALITY DISORDER
  3. INGREZZA [Suspect]
     Active Substance: VALBENAZINE
     Indication: POST-TRAUMATIC STRESS DISORDER
     Dates: start: 20191231, end: 20200103
  4. INGREZZA [Suspect]
     Active Substance: VALBENAZINE
     Indication: BIPOLAR DISORDER

REACTIONS (4)
  - Nausea [Not Recovered/Not Resolved]
  - Somnolence [Not Recovered/Not Resolved]
  - Irregular breathing [Not Recovered/Not Resolved]
  - Off label use [Unknown]
